FAERS Safety Report 5812112-6 (Version None)
Quarter: 2008Q3

REPORT INFORMATION
  Report Type: 
  Country: None (occurrence: None)
  Receive Date: 20080716
  Receipt Date: 20080709
  Transmission Date: 20090109
  Serious: Yes (Death, Hospitalization, Other)
  Sender: FDA-Public Use
  Company Number: US-BAXTER-2008BH005202

PATIENT
  Age: 67 Year
  Sex: Male
  Weight: 129 kg

DRUGS (2)
  1. HEPARIN LOCK-FLUSH [Suspect]
     Indication: INTRAVENOUS CATHETER MANAGEMENT
     Dosage: DOSE UNIT:UNKNOWN
     Route: 042
     Dates: start: 20080101, end: 20080301
  2. UNSPECIFIED ANTIBIOTIC [Concomitant]
     Indication: TOE AMPUTATION
     Dosage: DOSE UNIT:UNKNOWN
     Route: 042

REACTIONS (8)
  - ATRIAL FIBRILLATION [None]
  - BLOOD COUNT ABNORMAL [None]
  - CARDIAC FAILURE [None]
  - DISCOMFORT [None]
  - DYSPNOEA [None]
  - HYPOTENSION [None]
  - PAIN [None]
  - SKIN DISCOLOURATION [None]
